FAERS Safety Report 19203886 (Version 4)
Quarter: 2021Q3

REPORT INFORMATION
  Report Type: Report from Study
  Country: CN (occurrence: CN)
  Receive Date: 20210503
  Receipt Date: 20210806
  Transmission Date: 20211014
  Serious: Yes (Hospitalization)
  Sender: FDA-Public Use
  Company Number: CN-ROCHE-2823006

PATIENT
  Age: 69 Year
  Sex: Male
  Weight: 60 kg

DRUGS (10)
  1. ATEZOLIZUMAB. [Suspect]
     Active Substance: ATEZOLIZUMAB
     Indication: HEPATOCELLULAR CARCINOMA
     Dosage: ON 18/JAN/2021 (TO BE CLARIFIED), THE PATIENT RECEIVED THE MOST RECENT DOSE OF ATEZOLIZUMAB.
     Route: 041
     Dates: start: 20200821, end: 20210118
  2. ATEZOLIZUMAB. [Suspect]
     Active Substance: ATEZOLIZUMAB
     Route: 041
     Dates: start: 20210507
  3. CLARITIN [Concomitant]
     Active Substance: LORATADINE
  4. PREDNISONE. [Concomitant]
     Active Substance: PREDNISONE
  5. POTASSIUM CHLORIDE. [Concomitant]
     Active Substance: POTASSIUM CHLORIDE
  6. XL184 [Suspect]
     Active Substance: CABOZANTINIB
     Dosage: DOSE WAS REDUCED TO 20MG, QD ORAL DUE TO BLISTER LIKE CHANGES ON HANDS AND FEET.
     Route: 048
     Dates: start: 20210330
  7. AMLODIPINE BESYLATE. [Concomitant]
     Active Substance: AMLODIPINE BESYLATE
  8. ENTECAVIR. [Concomitant]
     Active Substance: ENTECAVIR
  9. XL184 [Suspect]
     Active Substance: CABOZANTINIB
     Route: 048
     Dates: start: 20210504
  10. XL184 [Suspect]
     Active Substance: CABOZANTINIB
     Indication: HEPATOCELLULAR CARCINOMA
     Dosage: ON 14/APR/2021, THE PATIENT RECEIVED THE MOST RECENT DOSE OF CABOZANTINIB PRIOR TO THE EVENT AT A DO
     Route: 048
     Dates: start: 20200821, end: 20210329

REACTIONS (1)
  - Pneumonia [Recovered/Resolved]

NARRATIVE: CASE EVENT DATE: 20210419
